FAERS Safety Report 9729414 (Version 2)
Quarter: 2015Q3

REPORT INFORMATION
  Report Type: Spontaneous
  Country: US (occurrence: US)
  Receive Date: 20131204
  Receipt Date: 20150804
  Transmission Date: 20151125
  Serious: No
  Sender: FDA-Public Use
  Company Number: US-GILEAD-2009-0021190

PATIENT
  Age: 42 Year
  Sex: Female
  Weight: 66.68 kg

DRUGS (5)
  1. GLUCOTROL [Concomitant]
     Active Substance: GLIPIZIDE
  2. METFORMIN [Concomitant]
     Active Substance: METFORMIN HYDROCHLORIDE
  3. LETAIRIS [Suspect]
     Active Substance: AMBRISENTAN
     Indication: PULMONARY ARTERIAL HYPERTENSION
     Route: 048
     Dates: start: 20081108
  4. IBUPROFEN. [Concomitant]
     Active Substance: IBUPROFEN
  5. REVATIO [Concomitant]
     Active Substance: SILDENAFIL CITRATE

REACTIONS (4)
  - Eye swelling [Unknown]
  - Dyspnoea [Unknown]
  - Erythema [Unknown]
  - Swelling face [Unknown]
